FAERS Safety Report 14841333 (Version 1)
Quarter: 2018Q2

REPORT INFORMATION
  Report Type: Spontaneous
  Country: US (occurrence: US)
  Receive Date: 20180418
  Receipt Date: 20180418
  Transmission Date: 20180711
  Serious: Yes (Death, Life-Threatening)
  Sender: FDA-Public Use
  Company Number: None

PATIENT
  Age: 61 Year
  Sex: Male
  Weight: 101.25 kg

DRUGS (1)
  1. NUCYNTA ER [Suspect]
     Active Substance: TAPENTADOL HYDROCHLORIDE
     Indication: PAIN
     Dosage: ?          QUANTITY:60 TABLET(S);?
     Route: 048
     Dates: start: 20171012, end: 20171224

REACTIONS (8)
  - Lung disorder [None]
  - Cardiac disorder [None]
  - Confusional state [None]
  - Drug interaction [None]
  - Malaise [None]
  - Pneumonia [None]
  - Hallucination, visual [None]
  - Withdrawal syndrome [None]

NARRATIVE: CASE EVENT DATE: 20171015
